FAERS Safety Report 16148172 (Version 1)
Quarter: 2019Q2

REPORT INFORMATION
  Report Type: Spontaneous
  Country: US (occurrence: US)
  Receive Date: 20190402
  Receipt Date: 20190402
  Transmission Date: 20190711
  Serious: No
  Sender: FDA-Public Use
  Company Number: US-MYLANLABS-2019M1023475

PATIENT
  Sex: Male
  Weight: 77 kg

DRUGS (1)
  1. GUANFACINE TABLETS, USP [Suspect]
     Active Substance: GUANFACINE
     Indication: PRODUCT USED FOR UNKNOWN INDICATION
     Dosage: UNK

REACTIONS (4)
  - Disturbance in attention [Unknown]
  - Aggression [Unknown]
  - Abdominal discomfort [Unknown]
  - Abnormal behaviour [Unknown]
